FAERS Safety Report 18648159 (Version 1)
Quarter: 2020Q4

REPORT INFORMATION
  Report Type: Report from Study
  Country: IT (occurrence: IT)
  Receive Date: 20201222
  Receipt Date: 20201222
  Transmission Date: 20210114
  Serious: Yes (Other)
  Sender: FDA-Public Use
  Company Number: IT-ACCORD-211830

PATIENT
  Age: 71 Year
  Sex: Female

DRUGS (4)
  1. METFORAL [Concomitant]
     Active Substance: METFORMIN HYDROCHLORIDE
  2. KARVEZIDE [Concomitant]
     Active Substance: HYDROCHLOROTHIAZIDE\IRBESARTAN
  3. NORVASC [Concomitant]
     Active Substance: AMLODIPINE BESYLATE
  4. SERTRALINE [Suspect]
     Active Substance: SERTRALINE HYDROCHLORIDE
     Indication: PRODUCT USED FOR UNKNOWN INDICATION

REACTIONS (2)
  - Disorientation [Unknown]
  - Aphasia [Unknown]

NARRATIVE: CASE EVENT DATE: 20200708
